FAERS Safety Report 8387461-0 (Version None)
Quarter: 2012Q2

REPORT INFORMATION
  Report Type: 
  Country: None (occurrence: None)
  Receive Date: 20120525
  Receipt Date: 20120521
  Transmission Date: 20120825
  Serious: No
  Sender: FDA-Public Use
  Company Number: PHHY2012BR035541

PATIENT
  Sex: Female

DRUGS (2)
  1. ONBREZ [Suspect]
     Dosage: 150 UG, UNK
  2. NAPRIX [Concomitant]
     Indication: HYPERTENSION
     Dosage: 1 DF, UNK
     Route: 048

REACTIONS (1)
  - NO ADVERSE EVENT [None]
